FAERS Safety Report 15986918 (Version 2)
Quarter: 2019Q1

REPORT INFORMATION
  Report Type: Spontaneous
  Country: BG (occurrence: BG)
  Receive Date: 20190220
  Receipt Date: 20190222
  Transmission Date: 20190418
  Serious: Yes (Other)
  Sender: FDA-Public Use
  Company Number: PHHY2019BG037678

PATIENT
  Age: 31 Year
  Sex: Female
  Weight: 60 kg

DRUGS (3)
  1. ACC [Suspect]
     Active Substance: ACETYLCYSTEINE
     Indication: COUGH
     Dosage: 600 MG, QD
     Route: 048
     Dates: start: 20190201, end: 20190204
  2. IBUPROFEN. [Concomitant]
     Active Substance: IBUPROFEN
     Indication: PRODUCT USED FOR UNKNOWN INDICATION
     Route: 048
  3. AMOXICLAV [Suspect]
     Active Substance: AMOXICILLIN\CLAVULANATE POTASSIUM
     Indication: LOWER RESPIRATORY TRACT INFECTION
     Dosage: UNK UNK, BID (875/125 MG)
     Route: 048
     Dates: start: 20190201, end: 20190208

REACTIONS (4)
  - Erythema [Recovered/Resolved with Sequelae]
  - Dermatitis allergic [Recovered/Resolved]
  - Pruritus [Recovered/Resolved with Sequelae]
  - Oedema [Recovered/Resolved with Sequelae]

NARRATIVE: CASE EVENT DATE: 20190201
